FAERS Safety Report 11670432 (Version 3)
Quarter: 2015Q4

REPORT INFORMATION
  Report Type: Spontaneous
  Country: RO (occurrence: RO)
  Receive Date: 20151028
  Receipt Date: 20151207
  Transmission Date: 20160304
  Serious: Yes (Life-Threatening, Hospitalization, Other)
  Sender: FDA-Public Use
  Company Number: RO-ABBVIE-15K-135-1474934-00

PATIENT
  Age: 78 Year
  Sex: Female
  Weight: 80 kg

DRUGS (3)
  1. HUMIRA [Suspect]
     Active Substance: ADALIMUMAB
     Indication: PSORIATIC ARTHROPATHY
     Route: 058
     Dates: start: 201205, end: 201508
  2. AMLODIPINE [Concomitant]
     Active Substance: AMLODIPINE BESYLATE
     Indication: HYPERTENSION
     Route: 048
     Dates: start: 201504
  3. TERTENSIF [Concomitant]
     Indication: HYPERTENSION
     Route: 048
     Dates: start: 2002

REACTIONS (17)
  - Myocardial infarction [Recovering/Resolving]
  - Atrioventricular block first degree [Unknown]
  - Diabetic nephropathy [Unknown]
  - Cardiac valve disease [Unknown]
  - Aortic valve stenosis [Unknown]
  - Chronic kidney disease [Unknown]
  - Psoriasis [Unknown]
  - Neuroendocrine carcinoma of the skin [Recovering/Resolving]
  - Aortic valve incompetence [Unknown]
  - Ischaemic cardiomyopathy [Unknown]
  - Aortic valve calcification [Unknown]
  - Mitral valve incompetence [Unknown]
  - Hypertensive nephropathy [Unknown]
  - Cardiac failure chronic [Unknown]
  - Myocardial ischaemia [Unknown]
  - Left ventricular failure [Unknown]
  - Carotid artery stenosis [Unknown]

NARRATIVE: CASE EVENT DATE: 20150812
